FAERS Safety Report 11042754 (Version 2)
Quarter: 2015Q2

REPORT INFORMATION
  Report Type: Spontaneous
  Country: US (occurrence: US)
  Receive Date: 20150416
  Receipt Date: 20150525
  Transmission Date: 20150821
  Serious: No
  Sender: FDA-Public Use
  Company Number: US-JNJFOC-20140812511

PATIENT
  Age: 81 Year
  Sex: Female
  Weight: 54.43 kg

DRUGS (5)
  1. CORGARD [Concomitant]
     Active Substance: NADOLOL
     Indication: CARDIAC DISORDER
     Route: 048
  2. CORGARD [Concomitant]
     Active Substance: NADOLOL
     Indication: CARDIAC DISORDER
     Route: 048
  3. XARELTO [Suspect]
     Active Substance: RIVAROXABAN
     Indication: THROMBOSIS
     Route: 048
     Dates: start: 20140810
  4. ISOSORBIDE [Concomitant]
     Active Substance: ISOSORBIDE
     Indication: CARDIAC DISORDER
     Route: 048
  5. HALCION [Concomitant]
     Active Substance: TRIAZOLAM
     Indication: SLEEP DISORDER
     Route: 048

REACTIONS (1)
  - Nausea [Not Recovered/Not Resolved]

NARRATIVE: CASE EVENT DATE: 20140810
